FAERS Safety Report 17561924 (Version 1)
Quarter: 2020Q1

REPORT INFORMATION
  Report Type: Report from Study
  Country: IT (occurrence: IT)
  Receive Date: 20200319
  Receipt Date: 20200319
  Transmission Date: 20200409
  Serious: Yes (Hospitalization)
  Sender: FDA-Public Use
  Company Number: IT-TEVA-2020-IT-1205011

PATIENT
  Age: 61 Year
  Sex: Male

DRUGS (2)
  1. LEXOTAN 2,5 MG/ML GOCCE ORALI SOLUZIONE [Suspect]
     Active Substance: BROMAZEPAM
     Indication: DRUG ABUSE
     Dosage: 20 ML
     Route: 048
     Dates: start: 20200207, end: 20200207
  2. RYTMONORM [Suspect]
     Active Substance: PROPAFENONE
     Indication: DRUG ABUSE
     Dosage: 10 DOSAGE FORMS
     Route: 048
     Dates: start: 20200207, end: 20200207

REACTIONS (3)
  - Immobile [Recovered/Resolved]
  - Intentional self-injury [Recovered/Resolved]
  - Mutism [Recovered/Resolved]

NARRATIVE: CASE EVENT DATE: 20200207
